FAERS Safety Report 11788732 (Version 1)
Quarter: 2015Q4

REPORT INFORMATION
  Report Type: Spontaneous
  Country: US (occurrence: None)
  Receive Date: 20151130
  Receipt Date: 20151130
  Transmission Date: 20160305
  Serious: No
  Sender: FDA-Public Use
  Company Number: None

PATIENT
  Age: 55 Year
  Sex: Female
  Weight: 52.16 kg

DRUGS (2)
  1. MULTIPLE VITAMINS WITH IRON [Concomitant]
  2. ANASTROZOLE 1 MG ACCORD HEALTHCARE [Suspect]
     Active Substance: ANASTROZOLE
     Indication: BREAST CANCER
     Dosage: 1 PILL
     Route: 048
     Dates: start: 20150904, end: 20151125

REACTIONS (1)
  - Postmenopausal haemorrhage [None]

NARRATIVE: CASE EVENT DATE: 20150918
